FAERS Safety Report 23069496 (Version 1)
Quarter: 2023Q4

REPORT INFORMATION
  Report Type: Spontaneous
  Country: US (occurrence: US)
  Receive Date: 20231016
  Receipt Date: 20231016
  Transmission Date: 20240110
  Serious: No
  Sender: FDA-Public Use
  Company Number: US-TAKEDA-2023TUS099444

PATIENT
  Age: 17 Month
  Weight: 11 kg

DRUGS (1)
  1. LIVTENCITY [Suspect]
     Active Substance: MARIBAVIR
     Indication: Product use in unapproved indication
     Route: 065

REACTIONS (2)
  - Product use issue [Unknown]
  - No adverse event [Unknown]
